FAERS Safety Report 4617765-6 (Version None)
Quarter: 2005Q1

REPORT INFORMATION
  Report Type: 
  Country: None (occurrence: None)
  Receive Date: 20050324
  Receipt Date: 20041104
  Transmission Date: 20050727
  Serious: Yes (Hospitalization)
  Sender: FDA-Public Use
  Company Number: US-GLAXOSMITHKLINE-A0532620A

PATIENT
  Age: 82 Year
  Sex: Male
  Weight: 98.2 kg

DRUGS (10)
  1. TAGAMET HB 200 [Suspect]
     Indication: FLATULENCE
     Route: 048
     Dates: end: 20050301
  2. PLAVIX [Concomitant]
     Indication: COAGULOPATHY
     Route: 048
  3. ASPIRIN [Concomitant]
     Indication: PROPHYLAXIS
     Route: 048
  4. BENAZEPRIL HCL [Concomitant]
     Indication: HYPERTENSION
     Route: 048
  5. METOPROLOL SUCCINATE [Concomitant]
     Indication: HYPERTENSION
     Route: 048
  6. ZOCOR [Concomitant]
     Indication: BLOOD CHOLESTEROL INCREASED
     Route: 048
  7. NEXIUM [Concomitant]
     Indication: FLATULENCE
     Route: 048
  8. PEPTO BISMOL [Concomitant]
     Indication: FLATULENCE
     Route: 048
  9. NASACORT [Concomitant]
     Indication: POSTNASAL DRIP
     Route: 045
  10. SALINE NASAL SPRAY [Concomitant]
     Indication: POSTNASAL DRIP
     Route: 045

REACTIONS (11)
  - AORTIC DILATATION [None]
  - BLADDER CANCER RECURRENT [None]
  - BLOOD URINE PRESENT [None]
  - CARDIOVASCULAR DISORDER [None]
  - CORONARY ARTERY OCCLUSION [None]
  - CYSTITIS [None]
  - FEELING COLD [None]
  - GASTROOESOPHAGEAL REFLUX DISEASE [None]
  - NIGHT SWEATS [None]
  - POOR PERIPHERAL CIRCULATION [None]
  - POSTNASAL DRIP [None]
